FAERS Safety Report 21051185 (Version 1)
Quarter: 2022Q3

REPORT INFORMATION
  Report Type: Spontaneous
  Country: FR (occurrence: FR)
  Receive Date: 20220707
  Receipt Date: 20220707
  Transmission Date: 20221026
  Serious: Yes (Hospitalization)
  Sender: FDA-Public Use
  Company Number: None

PATIENT
  Age: 92 Year
  Sex: Female

DRUGS (4)
  1. RILMENIDINE [Suspect]
     Active Substance: RILMENIDINE
     Indication: Hypertension
     Dosage: LC,UNIT DOSE : 1MG,FREQUENCY TIME : 1 DAY
     Route: 048
     Dates: end: 20220301
  2. SPIRONOLACTONE [Suspect]
     Active Substance: SPIRONOLACTONE
     Indication: Hypertension
     Dosage: LC,FREQUENCY TIME : 1 DAY, UNIT DOSE : 25MG
     Route: 048
     Dates: end: 202202
  3. FUROSEMIDE [Suspect]
     Active Substance: FUROSEMIDE
     Indication: Oedema
     Dosage: LC,UNIT DOSE :  80MG,FREQUENCY TIME : 1 DAY
     Route: 048
     Dates: end: 20220304
  4. HYDROCHLOROTHIAZIDE\VALSARTAN [Suspect]
     Active Substance: HYDROCHLOROTHIAZIDE\VALSARTAN
     Indication: Hypertension
     Dosage: LC, STRENGTH :160 MG/25 MG ,UNIT DOSE : 1 DOSAGE FORM,FREQUENCY TIME : 1 DAY
     Route: 048
     Dates: end: 20220311

REACTIONS (2)
  - Condition aggravated [Recovered/Resolved]
  - Acute kidney injury [Recovered/Resolved]

NARRATIVE: CASE EVENT DATE: 20220201
